FAERS Safety Report 8532769-9 (Version None)
Quarter: 2012Q3

REPORT INFORMATION
  Report Type: 
  Country: None (occurrence: None)
  Receive Date: 20120724
  Receipt Date: 20120719
  Transmission Date: 20120928
  Serious: Yes (Hospitalization, Other)
  Sender: FDA-Public Use
  Company Number: PHHY2012BR062762

PATIENT
  Sex: Female

DRUGS (3)
  1. AMLODOPINE BESYLATE AND VALSARTAN [Suspect]
     Indication: HYPERTENSION
     Dosage: 1 DF/DAY (320 MG VALS AND 5 MG AMLO)
     Route: 048
     Dates: start: 20110901
  2. METOPROLOL SUCCINATE [Concomitant]
  3. CAPTOPRIL [Concomitant]

REACTIONS (1)
  - CARDIAC ARREST [None]
